FAERS Safety Report 6499162-4 (Version None)
Quarter: 2009Q4

REPORT INFORMATION
  Report Type: 
  Country: None (occurrence: None)
  Receive Date: 20091215
  Receipt Date: 20091207
  Transmission Date: 20100525
  Serious: Yes (Other)
  Sender: FDA-Public Use
  Company Number: US-ELI_LILLY_AND_COMPANY-US200912001580

PATIENT
  Sex: Male

DRUGS (7)
  1. HUMALOG [Suspect]
     Indication: DIABETES MELLITUS
     Dosage: 30 U, EACH MORNING
     Dates: start: 19950101
  2. HUMALOG [Suspect]
     Dosage: 20 U, OTHER
     Dates: start: 19950101
  3. HUMALOG [Suspect]
     Dosage: 20 U, EACH EVENING
     Dates: start: 19950101
  4. HUMALOG [Suspect]
     Dosage: 30 U, EACH MORNING
  5. HUMALOG [Suspect]
     Dosage: 20 U, OTHER
  6. HUMALOG [Suspect]
     Dosage: 20 U, EACH EVENING
  7. LANTUS [Concomitant]
     Dosage: 30 U, EACH EVENING

REACTIONS (3)
  - BLINDNESS UNILATERAL [None]
  - CATARACT [None]
  - VISION BLURRED [None]
